FAERS Safety Report 11512483 (Version 1)
Quarter: 2015Q3

REPORT INFORMATION
  Report Type: Spontaneous
  Country: US (occurrence: None)
  Receive Date: 20150915
  Receipt Date: 20150915
  Transmission Date: 20151125
  Serious: No
  Sender: FDA-Public Use
  Company Number: None

PATIENT
  Age: 11 Year
  Sex: Male

DRUGS (1)
  1. HUMATROPE [Suspect]
     Active Substance: SOMATROPIN
     Indication: DWARFISM
     Dosage: 1.6MG 6 DAYS PER WEEK SQ
     Route: 058
     Dates: start: 20150811

REACTIONS (4)
  - Injection site pain [None]
  - Incorrect dose administered [None]
  - Needle issue [None]
  - Dysgeusia [None]

NARRATIVE: CASE EVENT DATE: 20150811
